FAERS Safety Report 8225087-X (Version None)
Quarter: 2012Q1

REPORT INFORMATION
  Report Type: 
  Country: None (occurrence: None)
  Receive Date: 20120307
  Receipt Date: 20090812
  Transmission Date: 20120608
  Serious: No
  Sender: FDA-Public Use
  Company Number: PHEH2009US09568

PATIENT

DRUGS (1)
  1. AFINITOR [Suspect]
     Dosage: 10 MG, DAILY, ORAL
     Route: 048

REACTIONS (1)
  - DRY EYE [None]
